FAERS Safety Report 5042538-2 (Version None)
Quarter: 2006Q2

REPORT INFORMATION
  Report Type: 
  Country: None (occurrence: None)
  Receive Date: 20060627
  Receipt Date: 20060614
  Transmission Date: 20061013
  Serious: Yes (Life-Threatening)
  Sender: FDA-Public Use
  Company Number: 2006075675

PATIENT
  Age: 55 Year
  Sex: Male

DRUGS (4)
  1. UNASYN [Suspect]
     Indication: DRUG USE FOR UNKNOWN INDICATION
     Dosage: 500 MG, INTRAVENOUS
     Route: 042
     Dates: start: 20060608, end: 20060608
  2. GENTAMICIN [Concomitant]
  3. ALL OTHER THERAPEUTIC PRODUCTS (ALL OTHER THERAPEUTIC PRODUCTS) [Concomitant]
  4. PANTORC (PANTOPRAZOLE SODIUM) [Concomitant]

REACTIONS (2)
  - ANAPHYLACTIC SHOCK [None]
  - PULMONARY OEDEMA [None]
